FAERS Safety Report 5405008-5 (Version None)
Quarter: 2007Q3

REPORT INFORMATION
  Report Type: 
  Country: None (occurrence: None)
  Receive Date: 20070801
  Receipt Date: 20070726
  Transmission Date: 20080115
  Serious: Yes (Death)
  Sender: FDA-Public Use
  Company Number: 2007SP015162

PATIENT
  Sex: Female

DRUGS (1)
  1. INTERFERON (MANUFACTURER UNKNOWN) [Suspect]
     Indication: HEPATITIS C
     Dates: start: 20030101

REACTIONS (1)
  - MALIGNANT MELANOMA [None]
